FAERS Safety Report 25731645 (Version 1)
Quarter: 2025Q3

REPORT INFORMATION
  Report Type: Other
  Country: US (occurrence: US)
  Receive Date: 20250827
  Receipt Date: 20250827
  Transmission Date: 20251020
  Serious: No
  Sender: RVL PHARMACEUTICALS
  Company Number: US-RVL_Pharmaceuticals-USA-POI1255202400260

PATIENT
  Age: 57 Year
  Sex: Female

DRUGS (1)
  1. UPNEEQ [Suspect]
     Active Substance: OXYMETAZOLINE HYDROCHLORIDE
     Indication: Eyelid ptosis
     Route: 047
     Dates: start: 202411, end: 202411

REACTIONS (4)
  - Vision blurred [Recovering/Resolving]
  - Abnormal sensation in eye [Recovering/Resolving]
  - Eye discharge [Recovering/Resolving]
  - Eye pruritus [Not Recovered/Not Resolved]

NARRATIVE: CASE EVENT DATE: 20241101
